FAERS Safety Report 9820293 (Version 1)
Quarter: 2014Q1

REPORT INFORMATION
  Report Type: Spontaneous
  Country: US (occurrence: None)
  Receive Date: 20140113
  Receipt Date: 20140113
  Transmission Date: 20141002
  Serious: No
  Sender: FDA-Public Use
  Company Number: None

PATIENT
  Age: 42 Year
  Sex: Female
  Weight: 93.44 kg

DRUGS (1)
  1. RESTASIS [Suspect]
     Indication: DRY EYE
     Dosage: 2 EYE DROPS
     Dates: start: 20131006, end: 20131115

REACTIONS (3)
  - Dry eye [None]
  - Condition aggravated [None]
  - Laboratory test abnormal [None]
